FAERS Safety Report 25983608 (Version 1)
Quarter: 2025Q4

REPORT INFORMATION
  Report Type: Spontaneous
  Country: EU (occurrence: EU)
  Receive Date: 20251031
  Receipt Date: 20251031
  Transmission Date: 20260117
  Serious: Yes (Other)
  Sender: IDORSIA PHARMACEUTICALS
  Company Number: None

PATIENT
  Age: 38 Year
  Sex: Female
  Weight: 65 kg

DRUGS (4)
  1. QUVIVIQ [Interacting]
     Active Substance: DARIDOREXANT
     Indication: Insomnia
     Dosage: 50 MG, QD
     Route: 048
     Dates: start: 20250601
  2. DIETARY SUPPLEMENT [Interacting]
     Active Substance: DIETARY SUPPLEMENT
     Indication: Insomnia
     Dosage: 2 DOSAGE FORM, QD
     Route: 048
     Dates: start: 20250101
  3. RYALTRIS [Interacting]
     Active Substance: MOMETASONE FUROATE MONOHYDRATE\OLOPATADINE HYDROCHLORIDE
     Indication: Rhinitis
     Dosage: 2 PULSES BEFORE GOING TO BED
     Dates: start: 20251015
  4. DIETARY SUPPLEMENT [Interacting]
     Active Substance: DIETARY SUPPLEMENT
     Indication: Neuralgia
     Dosage: 1 DOSAGE FORM, QD
     Route: 048
     Dates: start: 20251006

REACTIONS (6)
  - Coordination abnormal [Recovering/Resolving]
  - Sluggishness [Recovering/Resolving]
  - Mental impairment [Recovering/Resolving]
  - Fatigue [Recovering/Resolving]
  - Somnolence [Recovering/Resolving]
  - Drug interaction [Recovering/Resolving]

NARRATIVE: CASE EVENT DATE: 20251016
